FAERS Safety Report 7722026-2 (Version None)
Quarter: 2011Q3

REPORT INFORMATION
  Report Type: 
  Country: None (occurrence: None)
  Receive Date: 20110831
  Receipt Date: 20110825
  Transmission Date: 20111222
  Serious: Yes (Hospitalization, Other)
  Sender: FDA-Public Use
  Company Number: US-ABBOTT-11P-163-0849564-00

PATIENT
  Sex: Male
  Weight: 103.51 kg

DRUGS (5)
  1. WELLBUTRIN [Concomitant]
     Indication: EX-TOBACCO USER
  2. HUMIRA [Suspect]
     Indication: PSORIASIS
     Dates: start: 20110601
  3. GABAPENTIN [Concomitant]
     Indication: PAIN
  4. LISINOPRIL [Concomitant]
     Indication: BLOOD PRESSURE
  5. GABAPENTIN [Concomitant]
     Indication: INTERVERTEBRAL DISC PROTRUSION

REACTIONS (6)
  - BACK PAIN [None]
  - BACK DISORDER [None]
  - HYPERHIDROSIS [None]
  - VOMITING [None]
  - AORTIC ANEURYSM [None]
  - COUGH [None]
